FAERS Safety Report 6331554-6 (Version None)
Quarter: 2009Q3

REPORT INFORMATION
  Report Type: 
  Country: None (occurrence: None)
  Receive Date: 20090827
  Receipt Date: 20090824
  Transmission Date: 20100115
  Serious: Yes (Death)
  Sender: FDA-Public Use
  Company Number: LB-SANOFI-SYNTHELABO-F01200900772

PATIENT
  Age: 76 Year
  Sex: Male
  Weight: 70 kg

DRUGS (3)
  1. CAPECITABINE [Suspect]
     Dosage: 20000 MG
     Route: 048
     Dates: end: 20090701
  2. OXALIPLATIN [Suspect]
     Indication: COLORECTAL CANCER METASTATIC
     Route: 041
     Dates: start: 20090701, end: 20090701
  3. OXALIPLATIN [Suspect]
     Route: 041
     Dates: start: 20090701, end: 20090701

REACTIONS (1)
  - RENAL FAILURE [None]
